FAERS Safety Report 6559194-4 (Version None)
Quarter: 2010Q1

REPORT INFORMATION
  Report Type: 
  Country: None (occurrence: None)
  Receive Date: 20100129
  Receipt Date: 20100119
  Transmission Date: 20100710
  Serious: Yes (Death, Other)
  Sender: FDA-Public Use
  Company Number: BE-ABBOTT-10P-013-0620428-00

PATIENT
  Sex: Male
  Weight: 78 kg

DRUGS (1)
  1. LUCRIN DEPOT [Suspect]
     Indication: PROSTATE CANCER
     Dates: start: 20080201

REACTIONS (10)
  - ANAEMIA [None]
  - AORTIC VALVE STENOSIS [None]
  - CARDIAC ENZYMES INCREASED [None]
  - CARDIOPULMONARY FAILURE [None]
  - CHRONIC OBSTRUCTIVE PULMONARY DISEASE [None]
  - HYPERCAPNIA [None]
  - MYOCARDIAL INFARCTION [None]
  - RESPIRATORY ACIDOSIS [None]
  - RESPIRATORY ARREST [None]
  - VENTRICULAR TACHYCARDIA [None]
